FAERS Safety Report 5103703-9 (Version None)
Quarter: 2006Q3

REPORT INFORMATION
  Report Type: 
  Country: None (occurrence: None)
  Receive Date: 20060911
  Receipt Date: 20060911
  Transmission Date: 20061208
  Serious: Yes (Hospitalization)
  Sender: FDA-Public Use
  Company Number: None

PATIENT
  Sex: Male
  Weight: 92.9874 kg

DRUGS (18)
  1. TAXOTERE [Suspect]
     Indication: LUNG NEOPLASM MALIGNANT
     Dosage: 60 MG/M2/AUC 6 Q 21 DAYS IV DRIP
     Route: 041
     Dates: start: 20060626, end: 20060717
  2. CARBOPLATIN [Suspect]
     Indication: LUNG NEOPLASM MALIGNANT
     Dosage: 60 MG/M2/AUC 6 Q 21 DAYS IV DRIP
     Route: 041
     Dates: start: 20060626, end: 20060717
  3. VELCADE [Suspect]
     Dosage: 0.7MG/M2 DAY 1,4,8,11 IV DRIP
     Route: 041
     Dates: start: 20060626, end: 20060727
  4. FLOMAX [Concomitant]
  5. TENORMIN [Concomitant]
  6. LANOXIN [Concomitant]
  7. TRICOR [Concomitant]
  8. DIOVAN HCT [Concomitant]
  9. VALIUM [Concomitant]
  10. PERCOCET [Concomitant]
  11. CENTRUM SILVER [Concomitant]
  12. ZOFRAN [Concomitant]
  13. COMPAZINE [Concomitant]
  14. OXYCONTIN [Concomitant]
  15. DECADRON [Concomitant]
  16. MYCELEX [Concomitant]
  17. NYSTATIN [Concomitant]
  18. THORAZINE [Concomitant]

REACTIONS (3)
  - ABDOMINAL PAIN [None]
  - HEPATIC ENZYME INCREASED [None]
  - PAIN [None]
